FAERS Safety Report 10385446 (Version 3)
Quarter: 2014Q4

REPORT INFORMATION
  Report Type: Spontaneous
  Country: IT (occurrence: None)
  Receive Date: 20140812
  Receipt Date: 20141017
  Transmission Date: 20150528
  Serious: Yes (Life-Threatening, Other)
  Sender: FDA-Public Use
  Company Number: SP08144

PATIENT
  Age: 60 Year
  Sex: Female

DRUGS (1)
  1. MOVIPREP [Suspect]
     Active Substance: ASCORBIC ACID\POLYETHYLENE GLYCOL 3350\POTASSIUM CHLORIDE\SODIUM ASCORBATE\SODIUM CHLORIDE\SODIUM SULFATE
     Indication: BOWEL PREPARATION
     Route: 048

REACTIONS (14)
  - Back pain [None]
  - Stroke volume increased [None]
  - Headache [None]
  - Musculoskeletal pain [None]
  - Blood pressure diastolic increased [None]
  - Pain in extremity [None]
  - Electrocardiogram ST segment abnormal [None]
  - Cardiac disorder [None]
  - Extrasystoles [None]
  - Confusional state [None]
  - Electrocardiogram T wave abnormal [None]
  - Abdominal pain upper [None]
  - Echocardiogram abnormal [None]
  - Electrocardiogram repolarisation abnormality [None]

NARRATIVE: CASE EVENT DATE: 20140518
